FAERS Safety Report 7290740-1 (Version None)
Quarter: 2011Q1

REPORT INFORMATION
  Report Type: 
  Country: None (occurrence: None)
  Receive Date: 20110214
  Receipt Date: 20110203
  Transmission Date: 20110831
  Serious: Yes (Death)
  Sender: FDA-Public Use
  Company Number: JP-ROCHE-756107

PATIENT
  Sex: Male

DRUGS (3)
  1. PACLITAXEL [Concomitant]
     Dosage: DOSAGE : UNCERTAIN
     Route: 041
  2. AVASTIN [Suspect]
     Indication: LUNG ADENOCARCINOMA
     Route: 041
     Dates: start: 20110120, end: 20110120
  3. CARBOPLATIN [Concomitant]
     Dosage: DOSAGE REPORTED : UNCERTAIN
     Route: 041

REACTIONS (1)
  - HEPATITIS FULMINANT [None]
